FAERS Safety Report 17899093 (Version 2)
Quarter: 2020Q2

REPORT INFORMATION
  Report Type: Spontaneous
  Country: US (occurrence: US)
  Receive Date: 20200616
  Receipt Date: 20200625
  Transmission Date: 20200714
  Serious: Yes (Death, Other)
  Sender: FDA-Public Use
  Company Number: US-HIKMA PHARMACEUTICALS USA INC.-US-H14001-20-02811

PATIENT
  Sex: Male

DRUGS (3)
  1. MONOKET [Suspect]
     Active Substance: ISOSORBIDE MONONITRATE
     Indication: PRODUCT USED FOR UNKNOWN INDICATION
     Route: 048
  2. CEFPROZIL. [Concomitant]
     Active Substance: CEFPROZIL
     Indication: ACUTE SINUSITIS
     Route: 048
  3. KETOROLAC [Concomitant]
     Active Substance: KETOROLAC TROMETHAMINE
     Indication: PAIN IN EXTREMITY
     Route: 065

REACTIONS (2)
  - Product dispensing error [Unknown]
  - Completed suicide [Fatal]
